FAERS Safety Report 5900611-8 (Version None)
Quarter: 2008Q3

REPORT INFORMATION
  Report Type: 
  Country: None (occurrence: None)
  Receive Date: 20080926
  Receipt Date: 20080915
  Transmission Date: 20090109
  Serious: Yes (Other)
  Sender: FDA-Public Use
  Company Number: DK-PFIZER INC-2008077716

PATIENT
  Sex: Female

DRUGS (2)
  1. CYTOTEC [Suspect]
     Indication: ABORTION
     Route: 067
     Dates: start: 20080912, end: 20080912
  2. MIFEGYNE [Suspect]
     Indication: ABORTION
     Dosage: DAILY DOSE:200MG
     Route: 048
     Dates: start: 20080910, end: 20080910

REACTIONS (3)
  - ABORTION [None]
  - HYPERSENSITIVITY [None]
  - OFF LABEL USE [None]
